FAERS Safety Report 8729704 (Version 2)
Quarter: 2013Q1

REPORT INFORMATION
  Report Type: Spontaneous
  Country: BR (occurrence: BR)
  Receive Date: 20120817
  Receipt Date: 20130129
  Transmission Date: 20140127
  Serious: No
  Sender: FDA-Public Use
  Company Number: PHHY2012BR071113

PATIENT
  Sex: Female

DRUGS (4)
  1. DIOVAN [Suspect]
     Indication: BLOOD PRESSURE MANAGEMENT
     Dosage: 1 DF(80 MG), DAILY
     Route: 048
  2. DIOVAN [Suspect]
     Dosage: 1 DF(160 MG ), DAILY
     Route: 048
  3. ABLOK [Concomitant]
     Indication: CARDIAC DISORDER
     Dosage: 3 DF(25 MG), DAILY
     Route: 048
  4. ADALAT [Concomitant]
     Indication: BLOOD PRESSURE
     Dosage: 1 DF(10 MG), PRN
     Route: 048

REACTIONS (2)
  - Malaise [Recovering/Resolving]
  - Blood pressure decreased [Not Recovered/Not Resolved]
